FAERS Safety Report 7000908-7 (Version None)
Quarter: 2010Q3

REPORT INFORMATION
  Report Type: 
  Country: None (occurrence: None)
  Receive Date: 20100920
  Receipt Date: 20100910
  Transmission Date: 20110219
  Serious: Yes (Hospitalization)
  Sender: FDA-Public Use
  Company Number: PHHY2010CA60320

PATIENT
  Sex: Female

DRUGS (1)
  1. CLOZARIL [Suspect]
     Dosage: UNK
     Dates: start: 20011126, end: 20100903

REACTIONS (6)
  - FALL [None]
  - GASTROINTESTINAL TUBE INSERTION [None]
  - NECK INJURY [None]
  - NEUTROPHIL COUNT INCREASED [None]
  - PARALYSIS [None]
  - WHITE BLOOD CELL COUNT INCREASED [None]
